FAERS Safety Report 23268861 (Version 1)
Quarter: 2023Q4

REPORT INFORMATION
  Report Type: Spontaneous
  Country: PT (occurrence: PT)
  Receive Date: 20231206
  Receipt Date: 20231206
  Transmission Date: 20240110
  Serious: Yes (Life-Threatening, Other)
  Sender: FDA-Public Use
  Company Number: PT-EMA-DD-20230804-225467-112523

PATIENT
  Age: 16 Year
  Sex: Female

DRUGS (2)
  1. ETANERCEPT [Suspect]
     Active Substance: ETANERCEPT
     Indication: Adenosine deaminase 2 deficiency
     Dosage: 50 MG
     Route: 058
  2. INFLIXIMAB [Suspect]
     Active Substance: INFLIXIMAB
     Indication: Adenosine deaminase 2 deficiency
     Dosage: 5 MG/KG (6/6 WEEKS)
     Route: 042

REACTIONS (5)
  - Myopericarditis [Recovered/Resolved]
  - Cutaneous vasculitis [Recovered/Resolved]
  - Lymphoedema [Recovered/Resolved]
  - Cardiac disorder [Recovered/Resolved]
  - Peripheral ischaemia [Recovered/Resolved]
